FAERS Safety Report 21675807 (Version 1)
Quarter: 2022Q4

REPORT INFORMATION
  Report Type: Spontaneous
  Country: US (occurrence: None)
  Receive Date: 20221202
  Receipt Date: 20221202
  Transmission Date: 20230113
  Serious: Yes (Disabling)
  Sender: FDA-Public Use
  Company Number: None

PATIENT
  Age: 5 Year
  Sex: Female
  Weight: 17.1 kg

DRUGS (2)
  1. MONTELUKAST SODIUM [Suspect]
     Active Substance: MONTELUKAST SODIUM
     Indication: Rhinitis allergic
     Dosage: OTHER QUANTITY : 1 TABLET(S);?FREQUENCY : AT BEDTIME;?
     Route: 048
     Dates: start: 20221123, end: 20221130
  2. KARBINAL ER [Concomitant]
     Active Substance: CARBINOXAMINE MALEATE

REACTIONS (5)
  - Agitation [None]
  - Hostility [None]
  - Screaming [None]
  - Anger [None]
  - Personality change [None]

NARRATIVE: CASE EVENT DATE: 20221201
